FAERS Safety Report 24917667 (Version 1)
Quarter: 2025Q1

REPORT INFORMATION
  Report Type: Spontaneous
  Country: US (occurrence: US)
  Receive Date: 20250203
  Receipt Date: 20250203
  Transmission Date: 20250409
  Serious: Yes (Other)
  Sender: BRISTOL-MYERS SQUIBB COMPANY
  Company Number: US-BRISTOL-MYERS SQUIBB COMPANY-2025-013174

PATIENT
  Age: 84 Year
  Sex: Female

DRUGS (1)
  1. REVLIMID [Suspect]
     Active Substance: LENALIDOMIDE
     Indication: Plasma cell myeloma

REACTIONS (6)
  - Fatigue [Unknown]
  - Weight increased [Recovering/Resolving]
  - Constipation [Unknown]
  - Arthritis [Unknown]
  - Nephrolithiasis [Unknown]
  - Therapy interrupted [Unknown]
